FAERS Safety Report 9714253 (Version 2)
Quarter: 2013Q4

REPORT INFORMATION
  Report Type: Spontaneous
  Country: US (occurrence: US)
  Receive Date: 20131126
  Receipt Date: 20131126
  Transmission Date: 20140711
  Serious: No
  Sender: FDA-Public Use
  Company Number: US-GILEAD-2008-0019323

PATIENT
  Sex: Female
  Weight: 111.58 kg

DRUGS (9)
  1. LETAIRIS [Suspect]
     Indication: PULMONARY ARTERIAL HYPERTENSION
     Route: 048
     Dates: start: 20080308
  2. LASIX [Concomitant]
  3. DYAZIDE [Concomitant]
  4. NORVASC [Concomitant]
  5. LORTAB [Concomitant]
  6. POTASSIUM CHLORIDE [Concomitant]
  7. IRON DEXTRAN [Concomitant]
  8. FLUOXETINE [Concomitant]
  9. LYRICA [Concomitant]

REACTIONS (2)
  - Oedema [Unknown]
  - Local swelling [Unknown]
